FAERS Safety Report 8466129-6 (Version None)
Quarter: 2012Q2

REPORT INFORMATION
  Report Type: 
  Country: None (occurrence: None)
  Receive Date: 20120626
  Receipt Date: 20120613
  Transmission Date: 20120825
  Serious: Yes (Hospitalization)
  Sender: FDA-Public Use
  Company Number: DE-ASTRAZENECA-2012SE39940

PATIENT
  Age: 72 Year
  Sex: Female

DRUGS (18)
  1. VOLTAREN [Concomitant]
     Route: 048
     Dates: start: 20120205, end: 20120208
  2. MOVIPREP [Concomitant]
     Dates: start: 20120208
  3. CLONAZEPAM [Concomitant]
     Route: 048
  4. ASPIRIN [Concomitant]
     Route: 048
  5. BISOPROLOL FUMARATE [Suspect]
     Route: 048
  6. LYRICA [Suspect]
     Route: 048
     Dates: start: 20120127, end: 20120207
  7. LYRICA [Suspect]
     Route: 048
     Dates: start: 20120209
  8. ASPIRIN [Suspect]
     Route: 048
     Dates: end: 20120130
  9. LYRICA [Suspect]
     Route: 048
     Dates: start: 20120208
  10. SEROQUEL [Suspect]
     Route: 048
  11. TORSEMIDE [Suspect]
     Route: 048
  12. SIMVASTATIN [Concomitant]
     Route: 048
  13. RAMIPRIL [Suspect]
     Route: 048
  14. DIPIPERON [Suspect]
     Route: 048
     Dates: start: 20120207, end: 20120208
  15. REPAGLINIDE [Concomitant]
     Route: 048
  16. PANTOPRAZOLE [Concomitant]
     Route: 048
     Dates: start: 20120205
  17. MIRTAZAPINE [Suspect]
     Route: 048
     Dates: start: 20120126
  18. ASPIRIN [Suspect]
     Route: 048
     Dates: start: 20120131

REACTIONS (2)
  - HYPOTENSION [None]
  - DIZZINESS [None]
